FAERS Safety Report 12541668 (Version 1)
Quarter: 2016Q3

REPORT INFORMATION
  Report Type: Report from Study
  Country: US (occurrence: US)
  Receive Date: 20160708
  Receipt Date: 20160708
  Transmission Date: 20161109
  Serious: Yes (Hospitalization, Other)
  Sender: FDA-Public Use
  Company Number: US-BAYER-2016-092099

PATIENT
  Age: 50 Year
  Sex: Male

DRUGS (16)
  1. CITALOPRAM [Concomitant]
     Active Substance: CITALOPRAM HYDROBROMIDE
  2. AMOXIL [Concomitant]
     Active Substance: AMOXICILLIN
  3. XGEVA [Concomitant]
     Active Substance: DENOSUMAB
  4. LUPRON [Concomitant]
     Active Substance: LEUPROLIDE ACETATE
  5. PROCHLORPERAZINE. [Concomitant]
     Active Substance: PROCHLORPERAZINE
  6. STIVARGA [Suspect]
     Active Substance: REGORAFENIB
     Indication: RECTAL CANCER
     Dosage: 120 MG, QD
     Route: 048
     Dates: start: 20160428
  7. STIVARGA [Suspect]
     Active Substance: REGORAFENIB
     Indication: PROSTATE CANCER
  8. TAMSULOSIN [Concomitant]
     Active Substance: TAMSULOSIN
  9. CALCIUM [Concomitant]
     Active Substance: CALCIUM
  10. ONDANSETRON [Concomitant]
     Active Substance: ONDANSETRON
  11. OXYCODONE [Concomitant]
     Active Substance: OXYCODONE
  12. METOPROLOL. [Concomitant]
     Active Substance: METOPROLOL
  13. TOBRAMYCIN. [Concomitant]
     Active Substance: TOBRAMYCIN
  14. LISINOPRIL. [Concomitant]
     Active Substance: LISINOPRIL
  15. TRAMADOL. [Concomitant]
     Active Substance: TRAMADOL
  16. HYDROCODONE [Concomitant]
     Active Substance: HYDROCODONE

REACTIONS (9)
  - Skin fissures [Not Recovered/Not Resolved]
  - Weight decreased [Recovered/Resolved]
  - Syncope [Recovered/Resolved]
  - Systolic hypertension [Not Recovered/Not Resolved]
  - Fatigue [Not Recovered/Not Resolved]
  - Palmar-plantar erythrodysaesthesia syndrome [Not Recovered/Not Resolved]
  - Dehydration [None]
  - Skin irritation [Not Recovered/Not Resolved]
  - Oesophageal spasm [None]

NARRATIVE: CASE EVENT DATE: 20160428
